FAERS Safety Report 10409532 (Version 1)
Quarter: 2014Q2

REPORT INFORMATION
  Report Type: Spontaneous
  Country: US (occurrence: None)
  Receive Date: 20140530
  Receipt Date: 20140530
  Transmission Date: 20141212
  Serious: No
  Sender: FDA-Public Use
  Company Number: 226589LEO

PATIENT
  Age: 51 Year
  Sex: Female

DRUGS (6)
  1. PICATO [Suspect]
     Indication: ACTINIC KERATOSIS
     Dosage: 1 D
     Route: 061
     Dates: start: 20140215, end: 20140215
  2. PAXIL (PIROXICAM) [Concomitant]
  3. WELLBUTRIN (BUPROPION HYDROCHLORIDE) [Concomitant]
  4. SYNTHROID (LEVOTHYROXINE SODIUM) [Concomitant]
  5. PULMICORT (BUDESONIDE) [Concomitant]
  6. MAXALT (RIZATRIPTAN BENZOATE [Concomitant]

REACTIONS (4)
  - Application site vesicles [None]
  - Application site erythema [None]
  - Incorrect drug administration duration [None]
  - Drug administered at inappropriate site [None]
